FAERS Safety Report 13759145 (Version 1)
Quarter: 2017Q3

REPORT INFORMATION
  Report Type: Spontaneous
  Country: CA (occurrence: CA)
  Receive Date: 20170717
  Receipt Date: 20170717
  Transmission Date: 20171127
  Serious: Yes (Other)
  Sender: FDA-Public Use
  Company Number: CA-PFIZER INC-2017108642

PATIENT
  Age: 64 Year
  Sex: Female

DRUGS (3)
  1. OXYCODONE [Suspect]
     Active Substance: OXYCODONE
     Indication: PAIN
     Dosage: UNK
  2. XELJANZ [Suspect]
     Active Substance: TOFACITINIB CITRATE
     Indication: RHEUMATOID ARTHRITIS
     Dosage: 5 MG, 1X/DAY
     Route: 048
     Dates: start: 20160427
  3. PREDNISONE. [Suspect]
     Active Substance: PREDNISONE
     Dosage: AT 5 MG MAX DOSE THEN WEAN OFF, THE LAST FEW DAYS AT 4 MG, 3 MG AND 2 MG, AS NEEDED

REACTIONS (9)
  - Muscle spasms [Unknown]
  - Tendon disorder [Unknown]
  - Joint swelling [Unknown]
  - Neoplasm malignant [Unknown]
  - Rib fracture [Unknown]
  - Condition aggravated [Unknown]
  - Drug effect incomplete [Unknown]
  - Disease recurrence [Unknown]
  - Impaired driving ability [Unknown]
